FAERS Safety Report 5683160-4 (Version None)
Quarter: 2008Q1

REPORT INFORMATION
  Report Type: 
  Country: None (occurrence: None)
  Receive Date: 20080326
  Receipt Date: 20080313
  Transmission Date: 20080703
  Serious: Yes (Hospitalization)
  Sender: FDA-Public Use
  Company Number: 2008PV034592

PATIENT
  Age: 87 Year
  Sex: Male

DRUGS (4)
  1. SYMLINPEN 120 (PRAMLINTIDE ACETATE) PEN-INJECTOR (1.0 MG/ML) [Suspect]
     Indication: TYPE 2 DIABETES MELLITUS
     Dosage: 120 MCG; BID; SC, 60 MCG; BID; SC
     Route: 058
     Dates: start: 20080204, end: 20080101
  2. SYMLINPEN 120 (PRAMLINTIDE ACETATE) PEN-INJECTOR (1.0 MG/ML) [Suspect]
     Indication: TYPE 2 DIABETES MELLITUS
     Dosage: 120 MCG; BID; SC, 60 MCG; BID; SC
     Route: 058
     Dates: start: 20080101
  3. REGULAR INSULIN [Concomitant]
  4. HUMULIN N [Concomitant]

REACTIONS (1)
  - BLOOD GLUCOSE DECREASED [None]
